FAERS Safety Report 5481446-X (Version None)
Quarter: 2007Q4

REPORT INFORMATION
  Report Type: 
  Country: None (occurrence: None)
  Receive Date: 20071010
  Receipt Date: 20071004
  Transmission Date: 20080405
  Serious: Yes (Life-Threatening, Other)
  Sender: FDA-Public Use
  Company Number: B0490529A

PATIENT
  Age: 68 Year
  Sex: Male

DRUGS (6)
  1. CEFUROXIME SODIUM [Suspect]
     Indication: INTRAOPERATIVE CARE
     Route: 042
     Dates: start: 20070914, end: 20070914
  2. AMLODIPINE [Concomitant]
     Dosage: 5MG PER DAY
     Route: 048
  3. ASPIRIN [Concomitant]
     Dosage: 75MG PER DAY
     Route: 048
  4. LISINOPRIL [Concomitant]
     Dosage: 10MG PER DAY
     Route: 048
  5. PARACETAMOL [Concomitant]
  6. SIMVASTATIN [Concomitant]
     Dosage: 40MG PER DAY
     Route: 048

REACTIONS (2)
  - HYPOTENSION [None]
  - URTICARIA [None]
